FAERS Safety Report 19164982 (Version 1)
Quarter: 2021Q2

REPORT INFORMATION
  Report Type: Spontaneous
  Country: DK (occurrence: DK)
  Receive Date: 20210421
  Receipt Date: 20210421
  Transmission Date: 20210717
  Serious: Yes (Hospitalization, Other)
  Sender: FDA-Public Use
  Company Number: DK-TAKEDA-2021TUS023964

PATIENT
  Age: 46 Year
  Sex: Female

DRUGS (5)
  1. PANTOPRAZOLE TEVA [Concomitant]
     Active Substance: PANTOPRAZOLE SODIUM
     Indication: GASTROOESOPHAGEAL REFLUX DISEASE
     Dates: start: 20200707
  2. ENTYVIO [Suspect]
     Active Substance: VEDOLIZUMAB
     Indication: COLITIS ULCERATIVE
     Dosage: 108 MILLIGRAM
     Route: 058
     Dates: start: 20210309, end: 20210309
  3. EFASTAD [Concomitant]
     Indication: DEPRESSION
     Dates: start: 20080825
  4. IMOLOPE [Concomitant]
     Indication: DIARRHOEA
     Dates: start: 20200709
  5. PREDNISOLON [PREDNISOLONE] [Concomitant]
     Active Substance: PREDNISOLONE
     Indication: INFLAMMATORY BOWEL DISEASE
     Dates: start: 20200923, end: 20210311

REACTIONS (6)
  - Dysphonia [Unknown]
  - Dyspnoea [Recovering/Resolving]
  - Erythema [Unknown]
  - Rash pruritic [Recovering/Resolving]
  - Anaphylactic reaction [Recovering/Resolving]
  - Throat irritation [Unknown]

NARRATIVE: CASE EVENT DATE: 202103
